FAERS Safety Report 25629969 (Version 1)
Quarter: 2025Q3

REPORT INFORMATION
  Report Type: Spontaneous
  Country: CH (occurrence: CH)
  Receive Date: 20250731
  Receipt Date: 20250731
  Transmission Date: 20251020
  Serious: Yes (Other)
  Sender: ASTELLAS
  Company Number: CH-ASTELLAS-2025-AER-040434

PATIENT
  Age: 61 Year
  Sex: Female

DRUGS (3)
  1. TACROLIMUS [Suspect]
     Active Substance: TACROLIMUS
     Indication: Allogenic stem cell transplantation
     Route: 065
  2. PREDNISONE [Concomitant]
     Active Substance: PREDNISONE
     Indication: Acute graft versus host disease in intestine
     Dosage: HIGH DOSE
     Route: 065
  3. AZACITIDINE [Concomitant]
     Active Substance: AZACITIDINE
     Indication: Prophylaxis
     Route: 065

REACTIONS (6)
  - Kaposi^s sarcoma [Recovered/Resolved]
  - Kaposi sarcoma inflammatory cytokine syndrome [Recovered/Resolved]
  - Infection reactivation [Recovered/Resolved]
  - Human herpesvirus 8 infection [Recovered/Resolved]
  - Viraemia [Recovered/Resolved]
  - Off label use [Unknown]
